FAERS Safety Report 20778718 (Version 1)
Quarter: 2022Q2

REPORT INFORMATION
  Report Type: Other
  Country: GB (occurrence: None)
  Receive Date: 20220503
  Receipt Date: 20220503
  Transmission Date: 20220721
  Serious: Yes (Other)
  Sender: FDA-Public Use
  Company Number: GB-ROCHE-3087023

PATIENT
  Sex: Male

DRUGS (1)
  1. ESBRIET [Suspect]
     Active Substance: PIRFENIDONE
     Indication: Product used for unknown indication
     Dosage: 3 TIMES A DAY
     Route: 065
     Dates: start: 202202

REACTIONS (3)
  - Dyspnoea [Unknown]
  - Malaise [Unknown]
  - Nausea [Unknown]
